FAERS Safety Report 4877578-7 (Version None)
Quarter: 2006Q1

REPORT INFORMATION
  Report Type: 
  Country: None (occurrence: None)
  Receive Date: 20060111
  Receipt Date: 20060103
  Transmission Date: 20060701
  Serious: Yes (Hospitalization)
  Sender: FDA-Public Use
  Company Number: FR-GLAXOSMITHKLINE-B0405843A

PATIENT
  Age: 36 Year
  Sex: Female

DRUGS (4)
  1. ZELITREX [Suspect]
     Indication: EYE INFECTION
     Dosage: 6UNIT PER DAY
     Route: 048
     Dates: start: 20050828, end: 20050906
  2. FUNGIZONE [Suspect]
     Indication: EYE INFECTION
     Dosage: 20MG PER DAY
     Route: 042
     Dates: start: 20050829, end: 20050902
  3. CIFLOX [Suspect]
     Indication: EYE INFECTION
     Dosage: 1000MG PER DAY
     Route: 048
     Dates: start: 20050830, end: 20050906
  4. CANCIDAS [Concomitant]
     Indication: EYE INFECTION
     Dosage: 50MG PER DAY
     Route: 042
     Dates: start: 20050827, end: 20050919

REACTIONS (7)
  - ANAEMIA [None]
  - CHORIORETINITIS [None]
  - CHOROIDITIS [None]
  - EYE INFECTION FUNGAL [None]
  - THROMBOCYTOPENIA [None]
  - VISION BLURRED [None]
  - VISUAL ACUITY REDUCED [None]
